FAERS Safety Report 19108398 (Version 1)
Quarter: 2021Q2

REPORT INFORMATION
  Report Type: Spontaneous
  Country: US (occurrence: US)
  Receive Date: 20210408
  Receipt Date: 20210408
  Transmission Date: 20210717
  Serious: Yes (Death)
  Sender: FDA-Public Use
  Company Number: None

PATIENT
  Age: 71 Year
  Sex: Female
  Weight: 66.15 kg

DRUGS (18)
  1. WARFARIN [Concomitant]
     Active Substance: WARFARIN
  2. CLOBETASOL PROPIONATE 0.05% [Concomitant]
     Active Substance: CLOBETASOL PROPIONATE
  3. FENTANYL TRANSDERMAL SYSTEM [Concomitant]
     Active Substance: FENTANYL
  4. CAPECITABINE. [Suspect]
     Active Substance: CAPECITABINE
     Indication: BREAST CANCER FEMALE
     Dosage: ?          OTHER FREQUENCY:QPM X14 DAYS, 7OFF;?
     Route: 048
     Dates: start: 20210319, end: 20210405
  5. ACETAMINOPHEN 500MG [Concomitant]
     Active Substance: ACETAMINOPHEN
  6. FUROSEMIDE 20MG [Concomitant]
     Active Substance: FUROSEMIDE
  7. SENNOSIDES?DOCUSATE 8.6?50MG [Concomitant]
  8. CACLIUM CARBONATE 1250MG [Concomitant]
  9. EPA [Concomitant]
  10. GABAPENTIN 600MG [Concomitant]
     Active Substance: GABAPENTIN
  11. LORAZEPAM 0.5MG [Concomitant]
     Active Substance: LORAZEPAM
  12. MORPHINE SULFATE 15MG [Concomitant]
     Active Substance: MORPHINE SULFATE
  13. CAPECITABINE. [Suspect]
     Active Substance: CAPECITABINE
     Indication: BREAST CANCER FEMALE
     Dosage: ?          OTHER FREQUENCY:QAM X14DAYS, 7OFF;?
     Route: 048
     Dates: start: 20210319, end: 20210405
  14. ASCORBIC ACID 500MG [Concomitant]
  15. LETROZOLE 2.5MG [Concomitant]
     Active Substance: LETROZOLE
  16. POTASSIUM CHLORIDE 10MEQ [Concomitant]
     Active Substance: POTASSIUM CHLORIDE
  17. VITAMIN D 25MCG [Concomitant]
  18. POLYETHYLENE GLYCOL 17GM [Concomitant]

REACTIONS (1)
  - Death [None]

NARRATIVE: CASE EVENT DATE: 20210405
